FAERS Safety Report 6051965-6 (Version None)
Quarter: 2009Q1

REPORT INFORMATION
  Report Type: 
  Country: None (occurrence: None)
  Receive Date: 20090126
  Receipt Date: 20090112
  Transmission Date: 20090719
  Serious: Yes (Death)
  Sender: FDA-Public Use
  Company Number: GB-AVENTIS-200910518US

PATIENT
  Age: 71 Year
  Sex: Male

DRUGS (6)
  1. GLYBURIDE [Suspect]
     Dosage: DOSE: UNK
  2. VITAMIN K [Suspect]
     Dosage: DOSE: 0.5 MG PARENTERAL
  3. COUMADIN [Suspect]
     Dosage: DOSE: UNK
  4. SPIRONOLACTONE [Suspect]
     Dosage: DOSE: UNK
  5. IRON (NOS) [Suspect]
     Dosage: DOSE: UNK
  6. ERYTHROMYCIN [Suspect]
     Dosage: DOSE: UNK

REACTIONS (2)
  - CARDIAC ARREST [None]
  - VENTRICULAR FIBRILLATION [None]
